FAERS Safety Report 6535011-3 (Version None)
Quarter: 2010Q1

REPORT INFORMATION
  Report Type: 
  Country: None (occurrence: None)
  Receive Date: 20100111
  Receipt Date: 20100111
  Transmission Date: 20100710
  Serious: Yes (Hospitalization)
  Sender: FDA-Public Use
  Company Number: None

PATIENT
  Sex: Male
  Weight: 84.8226 kg

DRUGS (9)
  1. AVASTIN [Suspect]
     Indication: B-CELL LYMPHOMA
     Dosage: 10MG/KG IV
     Route: 042
     Dates: start: 20091103
  2. AVASTIN [Suspect]
     Indication: B-CELL LYMPHOMA
     Dosage: 10MG/KG IV
     Route: 042
     Dates: start: 20091124
  3. RITUXAN [Suspect]
     Indication: B-CELL LYMPHOMA
     Dosage: 375MG/M2 IV
     Route: 042
     Dates: start: 20091105
  4. RITUXAN [Suspect]
     Indication: B-CELL LYMPHOMA
     Dosage: 375MG/M2 IV
     Route: 042
     Dates: start: 20091117
  5. PRILOSEC [Concomitant]
  6. HUMULIN R [Concomitant]
  7. IMDUR [Concomitant]
  8. ASPIRIN [Concomitant]
  9. PRINIVIL [Concomitant]

REACTIONS (6)
  - CONDITION AGGRAVATED [None]
  - CORONARY ARTERY DISEASE [None]
  - DEMENTIA [None]
  - DIABETES MELLITUS [None]
  - FALL [None]
  - HYPERTENSION [None]
